FAERS Safety Report 6204145-5 (Version None)
Quarter: 2009Q2

REPORT INFORMATION
  Report Type: 
  Country: None (occurrence: None)
  Receive Date: 20090526
  Receipt Date: 20090526
  Transmission Date: 20091009
  Serious: Yes (Death, Other)
  Sender: FDA-Public Use
  Company Number: None

PATIENT
  Age: 68 Year
  Sex: Male
  Weight: 116.5744 kg

DRUGS (1)
  1. PROPOFOL [Suspect]
     Indication: SEDATION
     Dosage: 6ML INTRA-ARTERIAL
     Route: 013
     Dates: start: 20090512, end: 20090512

REACTIONS (8)
  - ACIDOSIS [None]
  - GENERAL PHYSICAL HEALTH DETERIORATION [None]
  - ISCHAEMIA [None]
  - LIVER DISORDER [None]
  - MULTI-ORGAN FAILURE [None]
  - PROPOFOL INFUSION SYNDROME [None]
  - RENAL DISORDER [None]
  - SEPSIS [None]
